FAERS Safety Report 6370604-8 (Version None)
Quarter: 2009Q3

REPORT INFORMATION
  Report Type: 
  Country: None (occurrence: None)
  Receive Date: 20090921
  Receipt Date: 20090921
  Transmission Date: 20100115
  Serious: Yes (Hospitalization)
  Sender: FDA-Public Use
  Company Number: None

PATIENT
  Age: 82 Year
  Sex: Male
  Weight: 73.94 kg

DRUGS (1)
  1. CARBIDOPA-LEVODOPA [Suspect]
     Indication: PARKINSONISM
     Dosage: 1/2 TAB BID PO
     Route: 048
     Dates: start: 20090813, end: 20090901

REACTIONS (2)
  - HYPOGLYCAEMIA [None]
  - TREMOR [None]
